FAERS Safety Report 13627426 (Version 1)
Quarter: 2017Q2

REPORT INFORMATION
  Report Type: Spontaneous
  Country: US (occurrence: US)
  Receive Date: 20170531
  Receipt Date: 20170531
  Transmission Date: 20170830
  Serious: Yes (Hospitalization)
  Sender: FDA-Public Use
  Company Number: US-ASTELLAS-1486446

PATIENT
  Age: 83 Year
  Sex: Female
  Weight: 50.39 kg

DRUGS (13)
  1. CELEXA [Concomitant]
     Active Substance: CITALOPRAM HYDROBROMIDE
     Dosage: TAKE 20 MG BY MOUTH DAILY
     Route: 065
  2. KLOR-CON M20 [Concomitant]
     Active Substance: POTASSIUM CHLORIDE
     Dosage: TAKE ONE TABLET BY MOUTH 2 TIMES DAILY
     Route: 065
  3. SYNTHROID [Concomitant]
     Active Substance: LEVOTHYROXINE SODIUM
     Dosage: TAKE 1 TABLET BY MOUTH DAILY
     Route: 065
  4. FOSAMAX [Concomitant]
     Active Substance: ALENDRONATE SODIUM
     Dosage: TAKE 1 TABLET Y MOUTH EVERY 7 DAYS
     Route: 065
  5. CORDARONE [Concomitant]
     Active Substance: AMIODARONE HYDROCHLORIDE
     Dosage: TAKE 1 TABLET BY MOUTH DAILY
     Route: 065
  6. LOPRESSOR [Concomitant]
     Active Substance: METOPROLOL TARTRATE
     Dosage: TAKE 1 TABLET BY MOUTH 2 TIME DAILY
     Route: 065
  7. LOMOTIL (UNITED STATES) [Concomitant]
  8. PREVALITE [Concomitant]
     Active Substance: CHOLESTYRAMINE
     Dosage: TAKE 1 PACKET BY MOUTH 2 TIME DAILY
     Route: 065
  9. AMIODARONE [Concomitant]
     Active Substance: AMIODARONE
  10. ULTRAM [Concomitant]
     Active Substance: TRAMADOL HYDROCHLORIDE
     Dosage: TAKE 1-2 TABLETS BY MOUTH
     Route: 065
  11. LASIX [Concomitant]
     Active Substance: FUROSEMIDE
     Dosage: TAKE 1 TABLET BY MOUTH DAILY
     Route: 065
  12. TARCEVA [Suspect]
     Active Substance: ERLOTINIB HYDROCHLORIDE
     Indication: BRONCHIAL CARCINOMA
     Route: 048
     Dates: start: 20141031
  13. MAG-OX [Concomitant]
     Active Substance: MAGNESIUM OXIDE
     Dosage: 400 (240 MG) TABLET?TAKE 1 TABLET BY MOUTH DAILY
     Route: 065

REACTIONS (6)
  - Hyperhidrosis [Unknown]
  - Chest pain [Recovered/Resolved]
  - Weight decreased [Unknown]
  - Back pain [Unknown]
  - Nausea [Unknown]
  - Dyspnoea [Unknown]

NARRATIVE: CASE EVENT DATE: 20141104
